FAERS Safety Report 6308058-X (Version None)
Quarter: 2009Q3

REPORT INFORMATION
  Report Type: 
  Country: None (occurrence: None)
  Receive Date: 20090813
  Receipt Date: 20090805
  Transmission Date: 20100115
  Serious: Yes (Other)
  Sender: FDA-Public Use
  Company Number: B0580641A

PATIENT
  Sex: Female
  Weight: 63 kg

DRUGS (1)
  1. WELLBUTRIN [Suspect]
     Indication: ATTENTION DEFICIT/HYPERACTIVITY DISORDER
     Dosage: 300MG PER DAY
     Route: 048

REACTIONS (1)
  - VISUAL ACUITY REDUCED [None]
